FAERS Safety Report 9209152 (Version 1)
Quarter: 2013Q2

REPORT INFORMATION
  Report Type: Spontaneous
  Country: US (occurrence: US)
  Receive Date: 20130404
  Receipt Date: 20130404
  Transmission Date: 20140414
  Serious: Yes (Hospitalization)
  Sender: FDA-Public Use
  Company Number: PHEH2013US007610

PATIENT
  Age: 83 Year
  Sex: Female

DRUGS (1)
  1. EXELON PATCH [Suspect]
     Indication: DEMENTIA ALZHEIMER^S TYPE
     Dosage: 4.6 MG, UNK
     Route: 062

REACTIONS (3)
  - Traumatic lung injury [Not Recovered/Not Resolved]
  - Pleural effusion [Not Recovered/Not Resolved]
  - Diarrhoea [Not Recovered/Not Resolved]
